FAERS Safety Report 18237354 (Version 1)
Quarter: 2020Q3

REPORT INFORMATION
  Report Type: Spontaneous
  Country: BR (occurrence: BR)
  Receive Date: 20200907
  Receipt Date: 20200907
  Transmission Date: 20201103
  Serious: Yes (Death, Other)
  Sender: FDA-Public Use
  Company Number: BR-ASTRAZENECA-2020SF13320

PATIENT
  Age: 42 Year
  Sex: Female

DRUGS (3)
  1. OXYGEN THERAPY [Concomitant]
     Active Substance: OXYGEN
  2. PALBOCICLIB [Suspect]
     Active Substance: PALBOCICLIB
     Indication: HER2 NEGATIVE BREAST CANCER
     Route: 048
  3. FULVESTRANT. [Suspect]
     Active Substance: FULVESTRANT
     Indication: HER2 NEGATIVE BREAST CANCER
     Route: 030

REACTIONS (3)
  - Suspected COVID-19 [Fatal]
  - Malignant neoplasm progression [Not Recovered/Not Resolved]
  - Oncologic complication [Fatal]

NARRATIVE: CASE EVENT DATE: 202005
